FAERS Safety Report 25655562 (Version 2)
Quarter: 2025Q3

REPORT INFORMATION
  Report Type: Spontaneous
  Country: US (occurrence: US)
  Receive Date: 20250807
  Receipt Date: 20250906
  Transmission Date: 20251020
  Serious: No
  Sender: COSETTE PHARMACEUTICALS INC
  Company Number: US-COSETTE-CP2025US000723

PATIENT
  Age: 61 Year

DRUGS (1)
  1. DAPSONE [Suspect]
     Active Substance: DAPSONE
     Indication: Rash pruritic
     Route: 065

REACTIONS (4)
  - Fibromyalgia [Unknown]
  - Arthritis [Unknown]
  - Headache [Recovered/Resolved]
  - Drug ineffective for unapproved indication [Unknown]
